FAERS Safety Report 4935094-8 (Version None)
Quarter: 2006Q1

REPORT INFORMATION
  Report Type: 
  Country: None (occurrence: None)
  Receive Date: 20060302
  Receipt Date: 20060223
  Transmission Date: 20060701
  Serious: Yes (Hospitalization, Other)
  Sender: FDA-Public Use
  Company Number: 2006026987

PATIENT
  Sex: Female

DRUGS (8)
  1. ZYRTEC [Suspect]
     Indication: HYPERSENSITIVITY
     Dosage: 10 MG (10 MG, 1 IN 1 D)
  2. ZYRTEC [Suspect]
     Indication: WHEEZING
     Dosage: 10 MG (10 MG, 1 IN 1 D)
  3. BACLOFEN [Concomitant]
  4. SYNTHROID [Concomitant]
  5. GLUCOVANCE [Concomitant]
  6. EVISTA [Concomitant]
  7. PREVACID [Concomitant]
  8. ENTEX (GUAIFENESIN, PHENYLEPHRINE HYDROCHLORIDE, PHENYLPROPANOLAMINE H [Concomitant]

REACTIONS (3)
  - CHOLECYSTITIS [None]
  - SOMNOLENCE [None]
  - WEIGHT INCREASED [None]
